FAERS Safety Report 22254130 (Version 1)
Quarter: 2023Q2

REPORT INFORMATION
  Report Type: Spontaneous
  Country: DE (occurrence: DE)
  Receive Date: 20230426
  Receipt Date: 20230426
  Transmission Date: 20230721
  Serious: Yes (Congenital Anomaly)
  Sender: FDA-Public Use
  Company Number: DE-EMBRYOTOX-202119549

PATIENT
  Age: 1 Day
  Sex: Female
  Weight: 1.35 kg

DRUGS (5)
  1. SERTRALINE [Suspect]
     Active Substance: SERTRALINE HYDROCHLORIDE
     Indication: Depression
     Dosage: 50 MILLIGRAM, QD
     Route: 064
     Dates: start: 20211010, end: 20220523
  2. LITHIUM CARBONATE [Suspect]
     Active Substance: LITHIUM CARBONATE
     Indication: Depression
     Dosage: 450 [MG/D ]/ 225 MG/D/ 450 MG/D(DAILY ALTERNATING
     Route: 064
     Dates: start: 20211010, end: 20220523
  3. LEVOTHYROXINE SODIUM [Concomitant]
     Active Substance: LEVOTHYROXINE SODIUM
     Indication: Hypothyroidism
     Dosage: 75 MICROGRAM, QD
     Route: 064
     Dates: start: 20211010, end: 20220523
  4. METOPROLOL SUCCINATE [Concomitant]
     Active Substance: METOPROLOL SUCCINATE
     Indication: Hypertension
     Dosage: 47.5 MILLIGRAM, QD
     Route: 064
  5. METHYLDOPA [Concomitant]
     Active Substance: METHYLDOPA
     Indication: Hypertension
     Dosage: 1000 MG/D/ INITIAL 500MG/D, INCREASED 1000MG/D
     Route: 064

REACTIONS (11)
  - Spina bifida [Unknown]
  - Congenital aqueductal stenosis [Unknown]
  - Pulmonary artery stenosis [Unknown]
  - Arnold-Chiari malformation [Unknown]
  - Atrial septal defect [Unknown]
  - Cerebellar hypoplasia [Unknown]
  - Patent ductus arteriosus [Unknown]
  - Tethered cord syndrome [Unknown]
  - Developmental hip dysplasia [Unknown]
  - Congenital hydrocephalus [Unknown]
  - Foetal exposure during pregnancy [Unknown]

NARRATIVE: CASE EVENT DATE: 20220501
